FAERS Safety Report 12935353 (Version 1)
Quarter: 2016Q4

REPORT INFORMATION
  Report Type: Spontaneous
  Country: US (occurrence: US)
  Receive Date: 20161114
  Receipt Date: 20161114
  Transmission Date: 20170207
  Serious: No
  Sender: FDA-Public Use
  Company Number: US-JAZZ-2016-US-018611

PATIENT
  Sex: Female

DRUGS (46)
  1. 5-HTP                              /00439301/ [Concomitant]
  2. PEPCID AC [Concomitant]
     Active Substance: FAMOTIDINE
  3. ASPIRIN EC [Concomitant]
     Active Substance: ASPIRIN
  4. PEPCID                             /00305201/ [Concomitant]
     Active Substance: ALUMINUM HYDROXIDE\MAGNESIUM CARBONATE
  5. PANTOPRAZOLE SODIUM. [Concomitant]
     Active Substance: PANTOPRAZOLE SODIUM
  6. FLONASE                            /00908302/ [Concomitant]
     Active Substance: MOMETASONE FUROATE
  7. PREDNISONE. [Concomitant]
     Active Substance: PREDNISONE
  8. GABAPENTIN. [Concomitant]
     Active Substance: GABAPENTIN
  9. CYANOCOBALAMIN. [Concomitant]
     Active Substance: CYANOCOBALAMIN
  10. INDERAL [Concomitant]
     Active Substance: PROPRANOLOL HYDROCHLORIDE
  11. PYRIDOXINE HCL [Concomitant]
     Active Substance: PYRIDOXINE HYDROCHLORIDE
  12. LOPRESSOR [Concomitant]
     Active Substance: METOPROLOL TARTRATE
  13. PROPRANOLOL [Concomitant]
     Active Substance: PROPRANOLOL\PROPRANOLOL HYDROCHLORIDE
  14. TYLENOL WITH CODEINE [Concomitant]
     Active Substance: ACETAMINOPHEN\CODEINE PHOSPHATE
  15. PREMARIN [Concomitant]
     Active Substance: ESTROGENS, CONJUGATED
  16. PROTONIX                           /00661201/ [Concomitant]
     Active Substance: OMEPRAZOLE
  17. PROZAC [Concomitant]
     Active Substance: FLUOXETINE HYDROCHLORIDE
  18. VITAMIN B6 [Concomitant]
     Active Substance: PYRIDOXINE HYDROCHLORIDE
  19. TAURINE [Concomitant]
     Active Substance: TAURINE
  20. NYSTATIN. [Concomitant]
     Active Substance: NYSTATIN
  21. TYLENOL EXTRA STRENGTH [Concomitant]
     Active Substance: ACETAMINOPHEN
  22. XYREM [Suspect]
     Active Substance: SODIUM OXYBATE
     Indication: NARCOLEPSY
     Dosage: 2.25 G, BID
     Route: 048
     Dates: start: 200510, end: 200709
  23. XYREM [Suspect]
     Active Substance: SODIUM OXYBATE
     Dosage: 4.5 G, BID
     Route: 048
     Dates: start: 200709
  24. MOTRIN [Concomitant]
     Active Substance: IBUPROFEN
  25. PROBIOTIC                          /06395501/ [Concomitant]
     Active Substance: BIFIDOBACTERIUM ANIMALIS SUBSP. LACTIS
  26. PROGESTERONE. [Concomitant]
     Active Substance: PROGESTERONE
  27. PAXIL [Concomitant]
     Active Substance: PAROXETINE HYDROCHLORIDE
  28. PRILOSEC [Concomitant]
     Active Substance: OMEPRAZOLE MAGNESIUM
  29. AMINOACETIC ACID [Concomitant]
     Active Substance: GLYCINE
  30. VISTARIL [Concomitant]
     Active Substance: HYDROXYZINE PAMOATE
  31. ATIVAN [Concomitant]
     Active Substance: LORAZEPAM
  32. VITAMIN C [Concomitant]
     Active Substance: ASCORBIC ACID
  33. OXYCODONE AND ACETAMINOPHEN [Concomitant]
     Active Substance: ACETAMINOPHEN\OXYCODONE HYDROCHLORIDE
  34. THEANINE [Concomitant]
     Active Substance: THEANINE
  35. AFRIN [Concomitant]
     Active Substance: OXYMETAZOLINE
  36. CLARITIN [Concomitant]
     Active Substance: LORATADINE
  37. KEFLEX [Concomitant]
     Active Substance: CEPHALEXIN
  38. PAXIL [Concomitant]
     Active Substance: PAROXETINE HYDROCHLORIDE
  39. TRYPTOPHAN, L- [Concomitant]
     Active Substance: TRYPTOPHAN
  40. WHEY PROTEIN [Concomitant]
  41. TRAZODONE [Concomitant]
     Active Substance: TRAZODONE HYDROCHLORIDE
  42. XYLOCAINE [Concomitant]
     Active Substance: LIDOCAINE HYDROCHLORIDE
  43. CIPRO [Concomitant]
     Active Substance: CIPROFLOXACIN HYDROCHLORIDE
  44. ONDANSETRON [Concomitant]
     Active Substance: ONDANSETRON
  45. PHENOBARBITAL. [Concomitant]
     Active Substance: PHENOBARBITAL
  46. UNASYN [Concomitant]
     Active Substance: AMPICILLIN SODIUM\SULBACTAM SODIUM

REACTIONS (1)
  - Seasonal allergy [Unknown]

NARRATIVE: CASE EVENT DATE: 2016
